FAERS Safety Report 8392525-1 (Version None)
Quarter: 2012Q2

REPORT INFORMATION
  Report Type: 
  Country: None (occurrence: None)
  Receive Date: 20120529
  Receipt Date: 20120516
  Transmission Date: 20120825
  Serious: Yes (Hospitalization)
  Sender: FDA-Public Use
  Company Number: US-MERCK-1204USA01365

PATIENT
  Age: 67 Year
  Sex: Female

DRUGS (3)
  1. ACTONEL [Suspect]
     Indication: OSTEOPOROSIS
     Route: 065
     Dates: start: 20020101, end: 20040101
  2. FOSAMAX [Suspect]
     Indication: OSTEOPOROSIS
     Route: 048
     Dates: start: 20040701, end: 20100301
  3. PREMPRO [Concomitant]
     Route: 065
     Dates: start: 19970101

REACTIONS (4)
  - FEMUR FRACTURE [None]
  - TOOTH DISORDER [None]
  - PEPTIC ULCER [None]
  - HYPERTENSION [None]
